FAERS Safety Report 6199003-9 (Version None)
Quarter: 2009Q2

REPORT INFORMATION
  Report Type: 
  Country: None (occurrence: None)
  Receive Date: 20090522
  Receipt Date: 20090515
  Transmission Date: 20091009
  Serious: Yes (Hospitalization)
  Sender: FDA-Public Use
  Company Number: US-ELI_LILLY_AND_COMPANY-US200905003274

PATIENT
  Sex: Female
  Weight: 102.4 kg

DRUGS (5)
  1. BYETTA [Suspect]
     Indication: TYPE 2 DIABETES MELLITUS
     Dosage: 5 UG, 2/D
     Route: 058
     Dates: start: 20080101, end: 20080101
  2. BYETTA [Suspect]
     Dosage: 10 UG, 2/D
     Route: 058
     Dates: start: 20090101
  3. METFORMIN HCL [Concomitant]
     Indication: TYPE 2 DIABETES MELLITUS
     Dosage: UNK, UNKNOWN
  4. LANTUS [Concomitant]
     Indication: TYPE 2 DIABETES MELLITUS
     Dosage: UNK, UNKNOWN
  5. ANALGESICS [Concomitant]
     Dosage: UNK, UNKNOWN
     Route: 048
     Dates: end: 20090101

REACTIONS (4)
  - BLOOD GLUCOSE INCREASED [None]
  - DECREASED APPETITE [None]
  - NECK PAIN [None]
  - WEIGHT DECREASED [None]
